FAERS Safety Report 19057262 (Version 6)
Quarter: 2022Q2

REPORT INFORMATION
  Report Type: Spontaneous
  Country: US (occurrence: US)
  Receive Date: 20210324
  Receipt Date: 20220615
  Transmission Date: 20220721
  Serious: Yes (Other)
  Sender: FDA-Public Use
  Company Number: US-SANOFI-00516569

PATIENT
  Age: 48 Year
  Sex: Female

DRUGS (2)
  1. LANTUS [Suspect]
     Active Substance: INSULIN GLARGINE
     Indication: Type 2 diabetes mellitus
     Dosage: 10-15 UNITS DAILY
     Route: 065
  2. NOVOLOG [Concomitant]
     Active Substance: INSULIN ASPART

REACTIONS (7)
  - Cerebrovascular accident [Unknown]
  - Pain in extremity [Unknown]
  - Movement disorder [Recovering/Resolving]
  - Brachial plexus injury [Unknown]
  - Monoparesis [Unknown]
  - Gait disturbance [Unknown]
  - Product dispensing error [Unknown]
